FAERS Safety Report 7804405-8 (Version None)
Quarter: 2011Q4

REPORT INFORMATION
  Report Type: 
  Country: None (occurrence: None)
  Receive Date: 20111010
  Receipt Date: 20111005
  Transmission Date: 20120403
  Serious: No
  Sender: FDA-Public Use
  Company Number: BR-ROCHE-744614

PATIENT
  Sex: Female
  Weight: 60 kg

DRUGS (1)
  1. ISOTRETINOIN [Suspect]
     Indication: PRODUCT USED FOR UNKNOWN INDICATION
     Route: 064
     Dates: start: 20100301, end: 20100601

REACTIONS (2)
  - PREGNANCY [None]
  - NORMAL NEWBORN [None]
